FAERS Safety Report 5133174-8 (Version None)
Quarter: 2006Q4

REPORT INFORMATION
  Report Type: 
  Country: None (occurrence: None)
  Receive Date: 20061023
  Receipt Date: 20061013
  Transmission Date: 20070319
  Serious: Yes (Other)
  Sender: FDA-Public Use
  Company Number: FR-BOEHRINGER INGELHEIM PHARMACEUTICALS, INC.-2006-FF-01097FF

PATIENT
  Age: 37 Year
  Sex: Male

DRUGS (1)
  1. CATAPRES [Suspect]
     Indication: DRUG DEPENDENCE
     Dosage: 10-12 TABLETS AND SOMETIMES 30 TABLETS DAILY

REACTIONS (2)
  - DRUG ABUSER [None]
  - DRUG DEPENDENCE [None]
